FAERS Safety Report 6166947-3 (Version None)
Quarter: 2009Q2

REPORT INFORMATION
  Report Type: 
  Country: None (occurrence: None)
  Receive Date: 20090423
  Receipt Date: 20090423
  Transmission Date: 20091009
  Serious: Yes (Other)
  Sender: FDA-Public Use
  Company Number: None

PATIENT
  Sex: Male
  Weight: 10.8863 kg

DRUGS (1)
  1. NEOSPORIN [Suspect]

REACTIONS (3)
  - DRUG HYPERSENSITIVITY [None]
  - FEELING ABNORMAL [None]
  - ORAL DISORDER [None]
